FAERS Safety Report 5226974-7 (Version None)
Quarter: 2007Q1

REPORT INFORMATION
  Report Type: 
  Country: None (occurrence: None)
  Receive Date: 20070201
  Receipt Date: 20070201
  Transmission Date: 20070707
  Serious: Yes (Hospitalization)
  Sender: FDA-Public Use
  Company Number: None

PATIENT
  Age: 43 Year
  Sex: Female
  Weight: 70.9 kg

DRUGS (3)
  1. TRAMADOL HCL [Suspect]
     Indication: MIGRAINE
     Dosage: NOT SURE 50MG 2 TABS?
     Dates: start: 20060801
  2. TOPAMAX [Suspect]
     Indication: CONVULSION
     Dosage: 200 MG BID
  3. TOPAMAX [Suspect]
     Indication: MIGRAINE
     Dosage: 200 MG BID

REACTIONS (7)
  - ALANINE AMINOTRANSFERASE INCREASED [None]
  - ASPARTATE AMINOTRANSFERASE INCREASED [None]
  - DRUG HYPERSENSITIVITY [None]
  - DRUG INTERACTION [None]
  - IMPAIRED WORK ABILITY [None]
  - NO THERAPEUTIC RESPONSE [None]
  - PANCREATITIS [None]
